FAERS Safety Report 24043158 (Version 1)
Quarter: 2024Q3

REPORT INFORMATION
  Report Type: Report from Study
  Country: CA (occurrence: CA)
  Receive Date: 20240702
  Receipt Date: 20240702
  Transmission Date: 20241016
  Serious: Yes (Other)
  Sender: ABBVIE
  Company Number: CA-ABBVIE-5821075

PATIENT
  Sex: Male

DRUGS (1)
  1. SKYRIZI [Suspect]
     Active Substance: RISANKIZUMAB-RZAA
     Indication: Psoriasis
     Dosage: LAST INJECTION: APRIL 2024
     Route: 058
     Dates: start: 20191125

REACTIONS (4)
  - Cataract [Unknown]
  - Blepharitis [Unknown]
  - Eye pain [Unknown]
  - Ocular cyst [Unknown]

NARRATIVE: CASE EVENT DATE: 20230101
